FAERS Safety Report 16429812 (Version 6)
Quarter: 2024Q4

REPORT INFORMATION
  Report Type: Spontaneous
  Country: US (occurrence: US)
  Receive Date: 20190614
  Receipt Date: 20241014
  Transmission Date: 20250115
  Serious: Yes (Death, Hospitalization, Other)
  Sender: GILEAD
  Company Number: US-GILEAD-2019-0412936

PATIENT
  Age: 34 Year
  Sex: Male
  Weight: 67.13 kg

DRUGS (39)
  1. ATRIPLA [Suspect]
     Active Substance: EFAVIRENZ\EMTRICITABINE\TENOFOVIR DISOPROXIL FUMARATE
     Indication: HIV infection
     Dosage: UNK
     Route: 048
     Dates: start: 201109, end: 201712
  2. ATRIPLA [Suspect]
     Active Substance: EFAVIRENZ\EMTRICITABINE\TENOFOVIR DISOPROXIL FUMARATE
     Dosage: UNK
     Route: 048
     Dates: start: 20120804, end: 201712
  3. ATRIPLA [Suspect]
     Active Substance: EFAVIRENZ\EMTRICITABINE\TENOFOVIR DISOPROXIL FUMARATE
     Dosage: UNK
     Route: 048
     Dates: start: 20120803, end: 201712
  4. TYBOST [Concomitant]
     Active Substance: COBICISTAT
  5. APIXABAN [Concomitant]
     Active Substance: APIXABAN
  6. HEPARIN [Concomitant]
     Active Substance: HEPARIN SODIUM
  7. METOPROLOL [Concomitant]
     Active Substance: METOPROLOL
  8. LASIX [Concomitant]
     Active Substance: FUROSEMIDE
  9. LISINOPRIL [Concomitant]
     Active Substance: LISINOPRIL
  10. RENVELA [Concomitant]
     Active Substance: SEVELAMER CARBONATE
  11. PHOSLO [Concomitant]
     Active Substance: CALCIUM ACETATE
  12. INSULIN NOS [Concomitant]
     Active Substance: INSULIN NOS
  13. PATIROMER [Concomitant]
     Active Substance: PATIROMER
  14. MEROPENEM [Concomitant]
     Active Substance: MEROPENEM
  15. CEFEPIME [Concomitant]
     Active Substance: CEFEPIME HYDROCHLORIDE
  16. VANCOMYCIN [Concomitant]
     Active Substance: VANCOMYCIN
  17. METRONIDAZOLE [Concomitant]
     Active Substance: METRONIDAZOLE
  18. CALCIUM GLUCONATE [Concomitant]
     Active Substance: CALCIUM GLUCONATE
  19. SODIUM BICARBONATE [Concomitant]
     Active Substance: SODIUM BICARBONATE
  20. ACETAMINOPHEN [Concomitant]
     Active Substance: ACETAMINOPHEN
  21. CEFTAZIDIME [Concomitant]
     Active Substance: CEFTAZIDIME
  22. LEVOFLOXACIN [Concomitant]
     Active Substance: LEVOFLOXACIN
  23. COUMADIN [Concomitant]
     Active Substance: WARFARIN SODIUM
  24. JANTOVEN [Concomitant]
     Active Substance: WARFARIN SODIUM
  25. EPIVIR [Concomitant]
     Active Substance: LAMIVUDINE
  26. JULUCA [Concomitant]
     Active Substance: DOLUTEGRAVIR SODIUM\RILPIVIRINE HYDROCHLORIDE
  27. PREZCOBIX [Concomitant]
     Active Substance: COBICISTAT\DARUNAVIR ETHANOLATE
  28. PREZISTA [Concomitant]
     Active Substance: DARUNAVIR ETHANOLATE
  29. TIVICAY [Concomitant]
     Active Substance: DOLUTEGRAVIR SODIUM
  30. ZIAGEN [Concomitant]
     Active Substance: ABACAVIR SULFATE
  31. ACETAMINOPHEN\HYDROCODONE [Concomitant]
     Active Substance: ACETAMINOPHEN\HYDROCODONE
  32. LACTULOSE [Concomitant]
     Active Substance: LACTULOSE
  33. SEVELAMER [Concomitant]
     Active Substance: SEVELAMER
  34. MOXIFLOXACIN [Concomitant]
     Active Substance: MOXIFLOXACIN
  35. CARVEDILOL [Concomitant]
     Active Substance: CARVEDILOL
  36. BIDIL [Concomitant]
     Active Substance: HYDRALAZINE HYDROCHLORIDE\ISOSORBIDE DINITRATE
  37. ATOVAQUONE [Concomitant]
     Active Substance: ATOVAQUONE
  38. COBICISTAT\DARUNAVIR ETHANOLATE [Concomitant]
     Active Substance: COBICISTAT\DARUNAVIR ETHANOLATE
  39. RILPIVIRINE [Concomitant]
     Active Substance: RILPIVIRINE

REACTIONS (10)
  - Death [Fatal]
  - End stage renal disease [Not Recovered/Not Resolved]
  - Chronic kidney disease [Unknown]
  - Renal failure [Unknown]
  - Acute kidney injury [Not Recovered/Not Resolved]
  - Nephrogenic anaemia [Not Recovered/Not Resolved]
  - Emotional distress [Not Recovered/Not Resolved]
  - Anhedonia [Not Recovered/Not Resolved]
  - Anxiety [Not Recovered/Not Resolved]
  - Pain [Not Recovered/Not Resolved]

NARRATIVE: CASE EVENT DATE: 20180201
